FAERS Safety Report 15891751 (Version 1)
Quarter: 2019Q1

REPORT INFORMATION
  Report Type: Report from Study
  Country: US (occurrence: US)
  Receive Date: 20190130
  Receipt Date: 20190130
  Transmission Date: 20190417
  Serious: Yes (Death, Other)
  Sender: FDA-Public Use
  Company Number: US-GILEAD-2018-0371461

PATIENT
  Age: 40 Year
  Sex: Female

DRUGS (5)
  1. AMBRISENTAN [Suspect]
     Active Substance: AMBRISENTAN
     Indication: PRODUCT USED FOR UNKNOWN INDICATION
     Dosage: 10 MG, QD
     Route: 065
     Dates: start: 20180829
  2. ELIQUIS [Concomitant]
     Active Substance: APIXABAN
  3. REVATIO [Concomitant]
     Active Substance: SILDENAFIL CITRATE
  4. TYVASO [Concomitant]
     Active Substance: TREPROSTINIL
  5. WARFARIN [Concomitant]
     Active Substance: WARFARIN

REACTIONS (10)
  - Palpitations [Not Recovered/Not Resolved]
  - Dyspnoea exertional [Not Recovered/Not Resolved]
  - Fatigue [Not Recovered/Not Resolved]
  - Presyncope [Unknown]
  - Death [Fatal]
  - Dyspnoea at rest [Not Recovered/Not Resolved]
  - Hypotension [Not Recovered/Not Resolved]
  - Chest pain [Not Recovered/Not Resolved]
  - Oedema peripheral [Not Recovered/Not Resolved]
  - Dizziness [Not Recovered/Not Resolved]
